FAERS Safety Report 24017720 (Version 5)
Quarter: 2025Q3

REPORT INFORMATION
  Report Type: Report from Study
  Country: US (occurrence: US)
  Receive Date: 20240627
  Receipt Date: 20250902
  Transmission Date: 20251020
  Serious: Yes (Hospitalization, Other)
  Sender: ABBVIE
  Company Number: US-ABBVIE-5815371

PATIENT
  Age: 82 Year
  Sex: Female

DRUGS (2)
  1. SKYRIZI [Suspect]
     Active Substance: RISANKIZUMAB-RZAA
     Indication: Crohn^s disease
     Route: 058
     Dates: start: 20240322
  2. SKYRIZI [Suspect]
     Active Substance: RISANKIZUMAB-RZAA
     Dosage: DISCONTINUED IN 2024
     Route: 058
     Dates: start: 20240223

REACTIONS (9)
  - Hypertension [Recovering/Resolving]
  - Pulmonary oedema [Not Recovered/Not Resolved]
  - Cognitive disorder [Not Recovered/Not Resolved]
  - Renal disorder [Unknown]
  - Cardiac failure congestive [Unknown]
  - Crohn^s disease [Not Recovered/Not Resolved]
  - Eye operation [Not Recovered/Not Resolved]
  - Feeling cold [Recovering/Resolving]
  - Retinal detachment [Not Recovered/Not Resolved]

NARRATIVE: CASE EVENT DATE: 20240101
